FAERS Safety Report 7842900-6 (Version None)
Quarter: 2011Q4

REPORT INFORMATION
  Report Type: 
  Country: None (occurrence: None)
  Receive Date: 20111025
  Receipt Date: 20111021
  Transmission Date: 20120403
  Serious: Yes (Other)
  Sender: FDA-Public Use
  Company Number: US-PFIZER INC-2011256153

PATIENT
  Sex: Female
  Weight: 62.132 kg

DRUGS (5)
  1. ACIPHEX [Concomitant]
     Indication: DYSPEPSIA
  2. CHANTIX [Suspect]
     Indication: SMOKING CESSATION THERAPY
     Dosage: 0.5 MG, 1X/DAY
     Route: 048
     Dates: start: 20090101, end: 20090101
  3. CHANTIX [Suspect]
     Dosage: 0.5 MG, 1X/DAY
     Route: 048
     Dates: start: 20110901, end: 20110901
  4. ACIPHEX [Concomitant]
     Indication: GASTROOESOPHAGEAL REFLUX DISEASE
     Dosage: UNK, AS NEEDED
  5. CHANTIX [Suspect]
     Dosage: 1 MG, 2X/DAY
     Route: 048
     Dates: start: 20110901

REACTIONS (6)
  - WEIGHT INCREASED [None]
  - PYREXIA [None]
  - DECREASED APPETITE [None]
  - NASOPHARYNGITIS [None]
  - INFLUENZA [None]
  - LOWER RESPIRATORY TRACT INFECTION [None]
